FAERS Safety Report 24029833 (Version 4)
Quarter: 2025Q1

REPORT INFORMATION
  Report Type: Report from Study
  Country: JP (occurrence: JP)
  Receive Date: 20240628
  Receipt Date: 20250210
  Transmission Date: 20250409
  Serious: Yes (Hospitalization)
  Sender: EISAI
  Company Number: JP-Eisai-EC-2024-168938

PATIENT
  Age: 74 Year
  Sex: Female
  Weight: 51 kg

DRUGS (7)
  1. LEQEMBI [Suspect]
     Active Substance: LECANEMAB-IRMB
     Indication: Dementia Alzheimer^s type
     Dates: start: 20240621, end: 20240621
  2. ASPIRIN [Concomitant]
     Active Substance: ASPIRIN
     Indication: Product used for unknown indication
  3. PITAVASTATIN CALCIUM [Concomitant]
     Active Substance: PITAVASTATIN CALCIUM
     Indication: Product used for unknown indication
  4. ALINAMIN F [Concomitant]
     Active Substance: FURSULTIAMINE HYDROCHLORIDE
  5. BIO-THREE [Concomitant]
     Active Substance: HERBALS
  6. HERBALS [Concomitant]
     Active Substance: HERBALS
  7. HERBALS [Concomitant]
     Active Substance: HERBALS

REACTIONS (3)
  - Infusion related reaction [Recovering/Resolving]
  - Rash [Recovering/Resolving]
  - C-reactive protein increased [Recovering/Resolving]

NARRATIVE: CASE EVENT DATE: 20240622
